APPROVED DRUG PRODUCT: BUSULFAN
Active Ingredient: BUSULFAN
Strength: 6MG/ML
Dosage Form/Route: INJECTABLE;INJECTION
Application: A202259 | Product #001
Applicant: AMERICAN REGENT INC
Approved: Dec 22, 2015 | RLD: No | RS: No | Type: DISCN